FAERS Safety Report 5901190-1 (Version None)
Quarter: 2008Q3

REPORT INFORMATION
  Report Type: 
  Country: None (occurrence: None)
  Receive Date: 20080929
  Receipt Date: 20080609
  Transmission Date: 20090109
  Serious: No
  Sender: FDA-Public Use
  Company Number: US-BRISTOL-MYERS SQUIBB COMPANY-14187363

PATIENT
  Age: 57 Year
  Sex: Female

DRUGS (6)
  1. ORENCIA [Suspect]
     Indication: RHEUMATOID ARTHRITIS
     Route: 042
     Dates: start: 20080508
  2. PREDNISONE [Concomitant]
     Route: 048
  3. METHOTREXATE [Concomitant]
     Route: 048
  4. MOBIC [Concomitant]
     Route: 048
  5. ACTONEL [Concomitant]
     Route: 048
  6. FOLIC ACID [Concomitant]

REACTIONS (2)
  - FALL [None]
  - SYNCOPE [None]
